FAERS Safety Report 9263226 (Version 1)
Quarter: 2013Q2

REPORT INFORMATION
  Report Type: Spontaneous
  Country: IT (occurrence: IT)
  Receive Date: 20130430
  Receipt Date: 20130430
  Transmission Date: 20140414
  Serious: Yes (Hospitalization)
  Sender: FDA-Public Use
  Company Number: IT-PFIZER INC-2013132395

PATIENT
  Age: 80 Year
  Sex: Male

DRUGS (4)
  1. AZITHROMYCIN [Suspect]
     Indication: BRONCHITIS
     Dosage: 500 MG, ALTERNATE DAY
     Route: 048
     Dates: start: 20120915, end: 20120919
  2. SPORANOX [Suspect]
     Indication: BRONCHITIS
     Dosage: 1 DF, 1X/DAY
     Route: 048
     Dates: start: 20120915, end: 20120920
  3. CUMADIN [Concomitant]
     Dosage: UNK
  4. IGROSELES [Concomitant]
     Dosage: UNK

REACTIONS (3)
  - Haemolytic anaemia [Recovered/Resolved with Sequelae]
  - Jaundice [Recovered/Resolved with Sequelae]
  - Thrombocytopenia [Recovered/Resolved with Sequelae]
